FAERS Safety Report 4406881-X (Version None)
Quarter: 2004Q3

REPORT INFORMATION
  Report Type: 
  Country: None (occurrence: None)
  Receive Date: 20040715
  Receipt Date: 20040707
  Transmission Date: 20050211
  Serious: Yes (Hospitalization)
  Sender: FDA-Public Use
  Company Number: CIP04001476

PATIENT
  Age: 49 Year
  Sex: Female

DRUGS (8)
  1. ACTONEL [Suspect]
     Indication: OSTEOPOROSIS
     Dosage: 2.5 MG DAILY, ORAL
     Route: 048
     Dates: start: 20040601
  2. ELCITONIN (ELCATONIN) [Concomitant]
  3. ALFAROL (ALFACALCIDOL) [Concomitant]
  4. NU-LOTAN (LOSARTAN POTASSIUM) [Concomitant]
  5. PARIET (RABEPRAZOLE SODIUM) [Concomitant]
  6. URSO [Concomitant]
  7. NICARDIPINE HCL [Concomitant]
  8. DRUG NOS [Concomitant]

REACTIONS (1)
  - AGRANULOCYTOSIS [None]
